FAERS Safety Report 22192102 (Version 2)
Quarter: 2023Q2

REPORT INFORMATION
  Report Type: Report from Study
  Country: US (occurrence: US)
  Receive Date: 20230410
  Receipt Date: 20230522
  Transmission Date: 20230721
  Serious: Yes (Other)
  Sender: FDA-Public Use
  Company Number: US-PFIZER INC-202300142188

PATIENT
  Sex: Female

DRUGS (2)
  1. DOXORUBICIN HYDROCHLORIDE [Suspect]
     Active Substance: DOXORUBICIN HYDROCHLORIDE
     Indication: Hyperthermic chemotherapy
     Dosage: 21 MG
     Route: 033
  2. CISPLATIN [Suspect]
     Active Substance: CISPLATIN
     Indication: Hyperthermic chemotherapy
     Dosage: 143 MG
     Route: 033

REACTIONS (4)
  - Hydronephrosis [Unknown]
  - Urinary incontinence [Unknown]
  - Abdominal pain [Unknown]
  - Infection [Unknown]
